FAERS Safety Report 9858713 (Version 1)
Quarter: 2014Q1

REPORT INFORMATION
  Report Type: Spontaneous
  Country: IT (occurrence: IT)
  Receive Date: 20140131
  Receipt Date: 20140131
  Transmission Date: 20141002
  Serious: Yes (Hospitalization)
  Sender: FDA-Public Use
  Company Number: IT-PFIZER INC-2014026731

PATIENT
  Age: 23 Year
  Sex: Female

DRUGS (3)
  1. AZITHROMYCIN [Suspect]
     Indication: INFLUENZA
     Dosage: 1 DF, DAILY
     Route: 048
     Dates: start: 20131203, end: 20131205
  2. TACHIFLU [Suspect]
     Indication: INFLUENZA
     Dosage: UNK
     Route: 048
     Dates: start: 20131203, end: 20131205
  3. NAPROXEN [Suspect]
     Indication: DYSMENORRHOEA
     Dosage: UNK (220 MG TABLET)
     Route: 048
     Dates: start: 20131222, end: 20131222

REACTIONS (4)
  - Erythema [Recovering/Resolving]
  - Pruritus [Recovering/Resolving]
  - Rash generalised [Recovering/Resolving]
  - Adverse drug reaction [Recovering/Resolving]
